FAERS Safety Report 24174456 (Version 1)
Quarter: 2024Q3

REPORT INFORMATION
  Report Type: Spontaneous
  Country: CN (occurrence: CN)
  Receive Date: 20240805
  Receipt Date: 20240805
  Transmission Date: 20241017
  Serious: Yes (Hospitalization)
  Sender: PAREXEL
  Company Number: CN-SHANGHAI JUNSHI BIOSCIENCES CO., LTD.-CN2024010833

PATIENT

DRUGS (4)
  1. TORIPALIMAB [Suspect]
     Active Substance: TORIPALIMAB
     Indication: Small cell lung cancer
     Dosage: 240 MG (D1), Q3W
     Route: 041
     Dates: start: 20240615, end: 20240615
  2. DOCETAXEL [Suspect]
     Active Substance: DOCETAXEL\DOCETAXEL ANHYDROUS
     Indication: Small cell lung cancer
     Dosage: 120 MG (75MG/M^2, D1), Q3W
     Route: 041
     Dates: start: 20240616, end: 20240616
  3. Ya dan zi you [Concomitant]
     Indication: Small cell lung cancer
     Dosage: UNK
     Dates: start: 20240616
  4. KU SHEN [Concomitant]
     Indication: Small cell lung cancer
     Dosage: UNK
     Dates: start: 20240616

REACTIONS (1)
  - Myelosuppression [Recovering/Resolving]

NARRATIVE: CASE EVENT DATE: 20240627
